FAERS Safety Report 24617862 (Version 6)
Quarter: 2025Q4

REPORT INFORMATION
  Report Type: Spontaneous
  Country: EU (occurrence: EU)
  Receive Date: 20241114
  Receipt Date: 20251225
  Transmission Date: 20260118
  Serious: Yes (Hospitalization, Other)
  Sender: SANDOZ
  Company Number: EU-HIKMA PHARMACEUTICALS-ES-H14001-24-10250

PATIENT
  Age: 75 Year
  Sex: Male
  Weight: 105.3 kg

DRUGS (58)
  1. PEMETREXED [Suspect]
     Active Substance: PEMETREXED
     Indication: Non-small cell lung cancer
     Dosage: 500 MILLIGRAM/SQ. METER, 3W
     Dates: start: 20241002, end: 20241002
  2. PEMETREXED [Suspect]
     Active Substance: PEMETREXED
     Dosage: 500 MG,  (TOTAL DOSE ADMINISTERED: 156 MG)
  3. PEMETREXED [Suspect]
     Active Substance: PEMETREXED
     Dosage: 78 ML
  4. PEMETREXED [Suspect]
     Active Substance: PEMETREXED
     Dosage: 500 MILLIGRAM, QOW
     Dates: start: 20241204, end: 20241204
  5. PEMETREXED [Suspect]
     Active Substance: PEMETREXED
     Dosage: 500 MILLIGRAM, 3W
     Dates: start: 20241224, end: 20241224
  6. PEMETREXED [Suspect]
     Active Substance: PEMETREXED
     Dosage: 500 MILLIGRAM/SQ. METER
     Dates: start: 20241204, end: 20241204
  7. PEMETREXED [Suspect]
     Active Substance: PEMETREXED
     Dosage: 500 MILLIGRAM/SQ. METER
     Dates: start: 20241224, end: 20241224
  8. PEMETREXED [Suspect]
     Active Substance: PEMETREXED
     Dosage: 500 MILLIGRAM/SQ. METER
     Dates: start: 20250122, end: 20250122
  9. PEMETREXED [Suspect]
     Active Substance: PEMETREXED
     Dosage: 500 MILLIGRAM/SQ. METER
     Dates: start: 20250212, end: 20250212
  10. PEMETREXED [Suspect]
     Active Substance: PEMETREXED
     Dosage: 500 MILLIGRAM/SQ. METER
     Dates: start: 20250305, end: 20250305
  11. PEMETREXED [Suspect]
     Active Substance: PEMETREXED
     Dosage: 500 MILLIGRAM/SQ. METER
     Dates: start: 20250416, end: 20250416
  12. PEMETREXED [Suspect]
     Active Substance: PEMETREXED
     Dosage: 500 MILLIGRAM/SQ. METER
     Dates: start: 20250507, end: 20250507
  13. PEMETREXED [Suspect]
     Active Substance: PEMETREXED
     Dosage: 500 MILLIGRAM/SQ. METER
     Dates: start: 20250528, end: 20250528
  14. PEMETREXED [Suspect]
     Active Substance: PEMETREXED
     Dosage: 500 MILLIGRAM/SQ. METER
     Dates: start: 20250618, end: 20250618
  15. PEMETREXED [Suspect]
     Active Substance: PEMETREXED
     Dosage: 500 MILLIGRAM/SQ. METER
     Dates: start: 20250708, end: 20250708
  16. PEMETREXED [Suspect]
     Active Substance: PEMETREXED
     Dosage: 500 MILLIGRAM/SQ. METER
     Dates: start: 20250729, end: 20250729
  17. PEMETREXED [Suspect]
     Active Substance: PEMETREXED
     Dosage: 500 MILLIGRAM/SQ. METER
     Dates: start: 20250819, end: 20250819
  18. PEMETREXED [Suspect]
     Active Substance: PEMETREXED
     Dosage: 500 MILLIGRAM/SQ. METER
     Dates: start: 20250909, end: 20250909
  19. PEMETREXED [Suspect]
     Active Substance: PEMETREXED
     Dosage: 500 MILLIGRAM/SQ. METER
     Dates: start: 20250930, end: 20250930
  20. CARBOPLATIN [Suspect]
     Active Substance: CARBOPLATIN
     Indication: Non-small cell lung cancer
     Dosage: 629 MILLIGRAM, 3W
     Dates: start: 20241002, end: 20241002
  21. CARBOPLATIN [Suspect]
     Active Substance: CARBOPLATIN
     Dosage: 629 MG (629 MILLIGRAM)
     Dates: start: 20241204, end: 20241204
  22. CARBOPLATIN [Suspect]
     Active Substance: CARBOPLATIN
     Dosage: 629 MG (629 MILLIGRAM)
     Dates: start: 20241224, end: 20241224
  23. VUDALIMAB [Suspect]
     Active Substance: VUDALIMAB
     Indication: Non-small cell lung cancer
     Dosage: 500 MILLIGRAM (TOTAL DOSE ADMINISTERED: 500 MG) , 3W
     Dates: start: 20241002, end: 20241002
  24. VUDALIMAB [Suspect]
     Active Substance: VUDALIMAB
     Dosage: 500 MILLIGRAM, (TOTAL DOSE ADMINISTERED: 156 MG)
  25. VUDALIMAB [Suspect]
     Active Substance: VUDALIMAB
     Dosage: 78 MILLILITER
  26. VUDALIMAB [Suspect]
     Active Substance: VUDALIMAB
     Dosage: 500 MILLIGRAM, QOW
     Dates: start: 20241204, end: 20241204
  27. VUDALIMAB [Suspect]
     Active Substance: VUDALIMAB
     Dosage: 500 MILLIGRAM, 3W
     Dates: start: 20241224, end: 20241224
  28. VUDALIMAB [Suspect]
     Active Substance: VUDALIMAB
     Dosage: 500 MILLIGRAM, 3W
     Dates: start: 20250122, end: 20250122
  29. VUDALIMAB [Suspect]
     Active Substance: VUDALIMAB
     Dosage: 500 MILLIGRAM, 3W
     Dates: start: 20250212, end: 20250212
  30. VUDALIMAB [Suspect]
     Active Substance: VUDALIMAB
     Dosage: 500 MILLIGRAM, 3W
     Dates: start: 20250305, end: 20250305
  31. VUDALIMAB [Suspect]
     Active Substance: VUDALIMAB
     Dosage: 500 MILLIGRAM, 3W
     Dates: start: 20250326, end: 20250326
  32. VUDALIMAB [Suspect]
     Active Substance: VUDALIMAB
     Dosage: 500 MILLIGRAM, 3W
     Dates: start: 20250416, end: 20250416
  33. VUDALIMAB [Suspect]
     Active Substance: VUDALIMAB
     Dosage: 500 MILLIGRAM, 3W
     Dates: start: 20250507, end: 20250507
  34. VUDALIMAB [Suspect]
     Active Substance: VUDALIMAB
     Dosage: 500 MILLIGRAM, 3W
     Dates: start: 20250528, end: 20250528
  35. VUDALIMAB [Suspect]
     Active Substance: VUDALIMAB
     Dosage: 500 MILLIGRAM, 3W
     Dates: start: 20250708, end: 20250708
  36. VUDALIMAB [Suspect]
     Active Substance: VUDALIMAB
     Dosage: 500 MILLIGRAM, 3W
     Dates: start: 20250618, end: 20250618
  37. VUDALIMAB [Suspect]
     Active Substance: VUDALIMAB
     Dosage: 500 MILLIGRAM, 3W
     Dates: start: 20250729, end: 20250729
  38. VUDALIMAB [Suspect]
     Active Substance: VUDALIMAB
     Dosage: 500 MILLIGRAM, 3W
     Dates: start: 20250930, end: 20250930
  39. VUDALIMAB [Suspect]
     Active Substance: VUDALIMAB
     Dosage: 500 MILLIGRAM, 3W
     Dates: start: 20250819, end: 20250819
  40. VUDALIMAB [Suspect]
     Active Substance: VUDALIMAB
     Dosage: 500 MILLIGRAM, 3W
     Dates: start: 20250909, end: 20250909
  41. VUDALIMAB [Suspect]
     Active Substance: VUDALIMAB
     Dosage: 500 MILLIGRAM, 3W
     Dates: start: 20250930, end: 20250930
  42. HYDROCHLOROTHIAZIDE [Concomitant]
     Active Substance: HYDROCHLOROTHIAZIDE
     Indication: Product used for unknown indication
     Dosage: UNK
  43. OLMESARTAN [Concomitant]
     Active Substance: OLMESARTAN
     Indication: Product used for unknown indication
     Dosage: UNK
  44. AMLODIPINE [Concomitant]
     Active Substance: AMLODIPINE BESYLATE
     Indication: Hypertension
     Dosage: UNK
  45. METFORMIN [Concomitant]
     Active Substance: METFORMIN HYDROCHLORIDE
     Indication: Type 2 diabetes mellitus
     Dosage: UNK
  46. BISOPROLOL [Concomitant]
     Active Substance: BISOPROLOL
     Indication: Myocardial ischaemia
     Dosage: UNK
  47. OMEPRAZOLE [Concomitant]
     Active Substance: OMEPRAZOLE
     Indication: Prophylaxis
     Dosage: UNK
  48. FEBUXOSTAT [Concomitant]
     Active Substance: FEBUXOSTAT
     Indication: Osteitis deformans
     Dosage: UNK
  49. ASPIRIN [Concomitant]
     Active Substance: ASPIRIN
     Indication: Myocardial ischaemia
     Dosage: UNK
  50. DULAGLUTIDE [Concomitant]
     Active Substance: DULAGLUTIDE
     Indication: Type 2 diabetes mellitus
     Dosage: UNK
  51. ATORVASTATIN [Concomitant]
     Active Substance: ATORVASTATIN
     Indication: Dyslipidaemia
     Dosage: UNK
  52. FOLIC ACID [Concomitant]
     Active Substance: FOLIC ACID
     Indication: Prophylaxis
     Dosage: UNK
  53. VITAMIN B12 [Concomitant]
     Active Substance: CYANOCOBALAMIN
     Indication: Prophylaxis
     Dosage: UNK
  54. PIPERACILLIN [Concomitant]
     Active Substance: PIPERACILLIN
     Indication: Pyrexia
     Dosage: UNK
     Dates: start: 20241018, end: 20241025
  55. AKYNZEO [Concomitant]
     Indication: Product used for unknown indication
     Dosage: UNK
     Dates: start: 20241002, end: 20241002
  56. DEXAMETHASONE [Concomitant]
     Active Substance: DEXAMETHASONE
     Indication: Product used for unknown indication
     Dosage: UNK
     Dates: start: 20241002, end: 20241002
  57. LINEZOLID [Concomitant]
     Active Substance: LINEZOLID
     Indication: Product used for unknown indication
     Dosage: 600 MG EVERY 12 HOURS IV WAS STARTED
  58. PIPERACILLIN SODIUM\TAZOBACTAM SODIUM [Concomitant]
     Active Substance: PIPERACILLIN SODIUM\TAZOBACTAM SODIUM
     Indication: Evidence based treatment
     Dosage: 4 GRAM, Q6H
     Dates: start: 20251014

REACTIONS (15)
  - C-reactive protein increased [Unknown]
  - Chest X-ray abnormal [Unknown]
  - Ultrasound abdomen abnormal [Unknown]
  - Cellulitis [Recovered/Resolved]
  - Palmar erythema [Unknown]
  - Neutropenia [Unknown]
  - Thrombocytopenia [Unknown]
  - Angina pectoris [Recovered/Resolved]
  - Anaemia [Unknown]
  - Blood creatinine increased [Unknown]
  - Platelet count decreased [Unknown]
  - Pyrexia [Recovered/Resolved]
  - Rash [Unknown]
  - Influenza [Unknown]
  - Erythema [Unknown]

NARRATIVE: CASE EVENT DATE: 20241018
